FAERS Safety Report 19596644 (Version 1)
Quarter: 2021Q3

REPORT INFORMATION
  Report Type: Spontaneous
  Country: FR (occurrence: FR)
  Receive Date: 20210722
  Receipt Date: 20210722
  Transmission Date: 20211014
  Serious: Yes (Other)
  Sender: FDA-Public Use
  Company Number: FR-MYLANLABS-2021M1043527

PATIENT
  Age: 40 Year
  Sex: Female
  Weight: 90 kg

DRUGS (6)
  1. ACEPROMETAZINE MALEATE, DIPOTASSIUM CLORAZEPATE [Suspect]
     Active Substance: ACEPROMAZINE MALEATE\CLORAZEPATE DIPOTASSIUM
     Indication: BIPOLAR DISORDER
     Dosage: 10 MILLIGRAM
     Route: 065
  2. SEROPLEX [Suspect]
     Active Substance: ESCITALOPRAM OXALATE
     Indication: BIPOLAR DISORDER
     Dosage: 2 DOSAGE FORM
  3. VALPROMIDE [Suspect]
     Active Substance: VALPROMIDE
     Indication: BIPOLAR DISORDER
     Dosage: 300 MILLIGRAM
  4. OXYBUTYNIN. [Suspect]
     Active Substance: OXYBUTYNIN CHLORIDE
     Indication: URINARY INCONTINENCE
     Dosage: 5 MILLIGRAM
  5. CLOPIXOL                           /00876702/ [Suspect]
     Active Substance: ZUCLOPENTHIXOL ACETATE
     Indication: BIPOLAR DISORDER
     Dosage: UNK UNK, QD
     Route: 030
     Dates: start: 20090116
  6. TRIHEXYPHENIDYL HYDROCHLORIDE. [Suspect]
     Active Substance: TRIHEXYPHENIDYL HYDROCHLORIDE
     Indication: NERVOUS SYSTEM DISORDER
     Dosage: 5 MILLIGRAM

REACTIONS (6)
  - Headache [Unknown]
  - Fatigue [Unknown]
  - Product use in unapproved indication [Unknown]
  - Anticholinergic syndrome [Unknown]
  - Gastrointestinal disorder [Unknown]
  - Hypersensitivity [Unknown]
